FAERS Safety Report 7091064-8 (Version None)
Quarter: 2010Q4

REPORT INFORMATION
  Report Type: 
  Country: None (occurrence: None)
  Receive Date: 20101109
  Receipt Date: 20101028
  Transmission Date: 20110411
  Serious: Yes (Other)
  Sender: FDA-Public Use
  Company Number: PHHY2010JP70713

PATIENT
  Age: 14 Year
  Sex: Male

DRUGS (4)
  1. CYCLOSPORINE [Suspect]
     Indication: FOCAL SEGMENTAL GLOMERULOSCLEROSIS
     Route: 048
  2. PREDNISOLONE [Concomitant]
  3. STEROIDS NOS [Concomitant]
  4. INSULIN [Concomitant]

REACTIONS (6)
  - DIABETES MELLITUS [None]
  - DISEASE RECURRENCE [None]
  - HYPERGLYCAEMIA [None]
  - IMPAIRED INSULIN SECRETION [None]
  - NEPHROTIC SYNDROME [None]
  - URINE ANALYSIS ABNORMAL [None]
